FAERS Safety Report 7267097-5 (Version None)
Quarter: 2011Q1

REPORT INFORMATION
  Report Type: 
  Country: None (occurrence: None)
  Receive Date: 20110201
  Receipt Date: 20110126
  Transmission Date: 20110831
  Serious: Yes (Other)
  Sender: FDA-Public Use
  Company Number: PHHO2011FR00975

PATIENT
  Sex: Male
  Weight: 86 kg

DRUGS (10)
  1. VOLTAREN [Concomitant]
  2. MOPRAL [Concomitant]
     Indication: GASTROOESOPHAGEAL REFLUX DISEASE
  3. MODAMIDE [Concomitant]
     Indication: HYPERTENSION
  4. EVEROLIMUS [Suspect]
     Dosage: CODE NOT BROKEN
     Dates: start: 20110121
  5. TOPALGIC [Concomitant]
     Indication: BONE PAIN
  6. LERCAN [Concomitant]
     Indication: HYPERTENSION
  7. PEVARYL [Concomitant]
  8. EVEROLIMUS [Suspect]
     Indication: HEPATIC NEOPLASM MALIGNANT
     Dosage: CODE NOT BROKEN
     Route: 048
     Dates: start: 20101209, end: 20110112
  9. CORGARD [Concomitant]
  10. LOCACID [Concomitant]
     Indication: RASH ERYTHEMATOUS

REACTIONS (3)
  - NEUTROPENIA [None]
  - CONCOMITANT DISEASE PROGRESSION [None]
  - HYPERSPLENISM [None]
